FAERS Safety Report 18245967 (Version 2)
Quarter: 2020Q3

REPORT INFORMATION
  Report Type: Spontaneous
  Country: DE (occurrence: DE)
  Receive Date: 20200909
  Receipt Date: 20200929
  Transmission Date: 20201103
  Serious: Yes (Life-Threatening)
  Sender: FDA-Public Use
  Company Number: DE-MDD US OPERATIONS-MDD202009-001741

PATIENT
  Age: 69 Year
  Sex: Male

DRUGS (2)
  1. ACETYLSALICYLIC ACID [Concomitant]
     Active Substance: ASPIRIN
     Dosage: NOT PROVIDED
  2. APOMORPHINE HYDROCHLORIDE [Suspect]
     Active Substance: APOMORPHINE HYDROCHLORIDE
     Indication: PARKINSON^S DISEASE
     Dosage: NOT PROVIDED
     Route: 058
     Dates: start: 201907

REACTIONS (1)
  - Application site necrosis [Recovered/Resolved with Sequelae]

NARRATIVE: CASE EVENT DATE: 20200429
